FAERS Safety Report 12731116 (Version 1)
Quarter: 2016Q3

REPORT INFORMATION
  Report Type: Spontaneous
  Country: US (occurrence: US)
  Receive Date: 20160911
  Receipt Date: 20160911
  Transmission Date: 20161109
  Serious: No
  Sender: FDA-Public Use
  Company Number: US-ASTRAZENECA-2016SE93649

PATIENT
  Sex: Female
  Weight: 45.4 kg

DRUGS (2)
  1. TOPROL XL [Suspect]
     Active Substance: METOPROLOL SUCCINATE
     Indication: PANIC DISORDER
     Route: 048
     Dates: start: 2008
  2. TOPROL XL [Suspect]
     Active Substance: METOPROLOL SUCCINATE
     Indication: BLOOD PRESSURE ABNORMAL
     Route: 048
     Dates: start: 2008

REACTIONS (5)
  - Product use issue [Unknown]
  - Off label use [Unknown]
  - Malaise [Unknown]
  - Coeliac disease [Unknown]
  - Weight decreased [Unknown]
